FAERS Safety Report 9423241 (Version 2)
Quarter: 2013Q3

REPORT INFORMATION
  Report Type: Report from Study
  Country: NL (occurrence: NL)
  Receive Date: 20130726
  Receipt Date: 20130807
  Transmission Date: 20140515
  Serious: Yes (Other)
  Sender: FDA-Public Use
  Company Number: NL-JNJFOC-20130712870

PATIENT
  Age: 58 Year
  Sex: Female
  Weight: 81 kg

DRUGS (11)
  1. INFLIXIMAB, RECOMBINANT [Suspect]
     Indication: RHEUMATOID ARTHRITIS
     Route: 042
     Dates: start: 20030512, end: 200511
  2. METHOTREXATE [Concomitant]
     Indication: RHEUMATOID ARTHRITIS
     Route: 042
  3. PARACETAMOL [Concomitant]
     Indication: PAIN
     Route: 065
  4. PARACETAMOL [Concomitant]
     Indication: PAIN
     Route: 065
  5. DICLOFENAC [Concomitant]
     Indication: PAIN
     Route: 065
  6. NEXIUM [Concomitant]
     Indication: GASTROINTESTINAL DISORDER THERAPY
     Route: 065
  7. CALCICHEW [Concomitant]
     Indication: OSTEOPOROSIS
     Route: 065
  8. ATENOLOL [Concomitant]
     Indication: HYPERTENSION
     Route: 065
  9. TRANXENE [Concomitant]
     Indication: SLEEP DISORDER
     Route: 065
  10. ZYRTEC [Concomitant]
     Indication: HYPERSENSITIVITY
     Route: 065
  11. FOLIC ACID [Concomitant]
     Indication: PRODUCT USED FOR UNKNOWN INDICATION
     Dosage: WITH METHOTREXATE USE
     Route: 065

REACTIONS (1)
  - Skin cancer [Recovered/Resolved]
